FAERS Safety Report 14120178 (Version 1)
Quarter: 2017Q4

REPORT INFORMATION
  Report Type: Spontaneous
  Country: US (occurrence: None)
  Receive Date: 20171024
  Receipt Date: 20171024
  Transmission Date: 20180321
  Serious: Yes (Hospitalization)
  Sender: FDA-Public Use
  Company Number: None

PATIENT
  Age: 29 Year
  Sex: Male

DRUGS (5)
  1. GINGER ROOT [Concomitant]
     Active Substance: GINGER
  2. STELARA [Suspect]
     Active Substance: USTEKINUMAB
     Indication: CROHN^S DISEASE
     Dosage: Q12WEEKS
     Route: 058
     Dates: start: 20170822
  3. PROBIOTIC [Concomitant]
     Active Substance: PROBIOTICS NOS
  4. CYMBALTA [Concomitant]
     Active Substance: DULOXETINE HYDROCHLORIDE
  5. PANCREAZE [Concomitant]
     Active Substance: PANCRELIPASE AMYLASE\PANCRELIPASE LIPASE\PANCRELIPASE PROTEASE

REACTIONS (3)
  - Pancreatitis [None]
  - Diarrhoea [None]
  - Haematochezia [None]

NARRATIVE: CASE EVENT DATE: 201710
